FAERS Safety Report 23432641 (Version 1)
Quarter: 2024Q1

REPORT INFORMATION
  Report Type: Spontaneous
  Country: US (occurrence: US)
  Receive Date: 20240123
  Receipt Date: 20240123
  Transmission Date: 20240410
  Serious: Yes (Other)
  Sender: FDA-Public Use
  Company Number: US-MYLANLABS-2024M1006944

PATIENT
  Age: 68 Year
  Sex: Male

DRUGS (4)
  1. GEMCITABINE [Suspect]
     Active Substance: GEMCITABINE
     Indication: Biphasic mesothelioma
     Dosage: 410 MILLIGRAM, CYCLE (FOR 4?CYCLES)
     Route: 065
     Dates: start: 2022, end: 2022
  2. CISPLATIN [Suspect]
     Active Substance: CISPLATIN
     Indication: Biphasic mesothelioma
     Dosage: 57 MILLIGRAM, CYCLE; FOR 4?CYCLES
     Route: 065
     Dates: start: 2022, end: 2022
  3. PEMETREXED [Suspect]
     Active Substance: PEMETREXED
     Indication: Biphasic mesothelioma
     Dosage: UNK
     Route: 065
  4. VINORELBINE [Suspect]
     Active Substance: VINORELBINE TARTRATE
     Indication: Biphasic mesothelioma
     Dosage: UNK
     Route: 065

REACTIONS (2)
  - Disease progression [Unknown]
  - Drug ineffective [Unknown]

NARRATIVE: CASE EVENT DATE: 20220101
